FAERS Safety Report 21076901 (Version 2)
Quarter: 2022Q3

REPORT INFORMATION
  Report Type: Spontaneous
  Country: DK (occurrence: DK)
  Receive Date: 20220713
  Receipt Date: 20220719
  Transmission Date: 20221026
  Serious: Yes (Other)
  Sender: FDA-Public Use
  Company Number: DK-BAYER-2022P006952

PATIENT
  Age: 58 Year
  Sex: Male

DRUGS (5)
  1. XOFIGO [Suspect]
     Active Substance: RADIUM RA-223 DICHLORIDE
     Dosage: UNK
     Dates: start: 20220216
  2. XOFIGO [Suspect]
     Active Substance: RADIUM RA-223 DICHLORIDE
     Dosage: UNK
     Dates: start: 20220316
  3. XOFIGO [Suspect]
     Active Substance: RADIUM RA-223 DICHLORIDE
     Dosage: UNK
     Dates: start: 20220413
  4. XOFIGO [Suspect]
     Active Substance: RADIUM RA-223 DICHLORIDE
     Dosage: 6.3 MBQ
     Dates: start: 20220511
  5. XOFIGO [Suspect]
     Active Substance: RADIUM RA-223 DICHLORIDE
     Dosage: 6.3 MBQ
     Dates: start: 20220608

REACTIONS (9)
  - Malignant neoplasm progression [None]
  - Prostatic specific antigen increased [None]
  - Blood alkaline phosphatase increased [None]
  - Metastases to bone [None]
  - Pain [None]
  - Decreased appetite [None]
  - Malaise [None]
  - Anaemia [None]
  - Weight decreased [None]
